FAERS Safety Report 12897974 (Version 1)
Quarter: 2016Q4

REPORT INFORMATION
  Report Type: Spontaneous
  Country: US (occurrence: US)
  Receive Date: 20161028
  Receipt Date: 20161028
  Transmission Date: 20170207
  Serious: No
  Sender: FDA-Public Use
  Company Number: None

PATIENT
  Age: 82 Year
  Sex: Female

DRUGS (1)
  1. COTELLIC [Suspect]
     Active Substance: COBIMETINIB
     Indication: MALIGNANT MELANOMA
     Dosage: COTELLIC 20MG - PO - ONCE DAILY FOR 21 DAYS
     Route: 048
     Dates: start: 20160926

REACTIONS (3)
  - Myalgia [None]
  - Visual acuity reduced [None]
  - Muscular weakness [None]

NARRATIVE: CASE EVENT DATE: 20160926
